FAERS Safety Report 7269898-6 (Version None)
Quarter: 2010Q4

REPORT INFORMATION
  Report Type: 
  Country: None (occurrence: None)
  Receive Date: 20101130
  Receipt Date: 20090903
  Transmission Date: 20110411
  Serious: Yes (Hospitalization)
  Sender: FDA-Public Use
  Company Number: 2008-188067-NL

PATIENT
  Age: 20 Year
  Sex: Female
  Weight: 117.9 kg

DRUGS (1)
  1. NUVARING [Suspect]
     Indication: CONTRACEPTION
     Dosage: 1 DF
     Dates: start: 20060520, end: 20061203

REACTIONS (4)
  - BRONCHITIS [None]
  - DERMATITIS CONTACT [None]
  - PLEURISY [None]
  - PULMONARY EMBOLISM [None]
